FAERS Safety Report 7190569-9 (Version None)
Quarter: 2010Q4

REPORT INFORMATION
  Report Type: 
  Country: None (occurrence: None)
  Receive Date: 20101223
  Receipt Date: 20101214
  Transmission Date: 20110411
  Serious: Yes (Disabling)
  Sender: FDA-Public Use
  Company Number: CA-ASTRAZENECA-2010SE59103

PATIENT
  Age: 26 Year
  Sex: Male
  Weight: 108.9 kg

DRUGS (1)
  1. SYMBICORT [Suspect]
     Indication: ASTHMA
     Dosage: 200-6 BID
     Route: 055
     Dates: start: 20100901

REACTIONS (2)
  - DERMATITIS EXFOLIATIVE [None]
  - HYPERSENSITIVITY [None]
